FAERS Safety Report 5445647-9 (Version None)
Quarter: 2007Q3

REPORT INFORMATION
  Report Type: 
  Country: None (occurrence: None)
  Receive Date: 20070906
  Receipt Date: 20070829
  Transmission Date: 20080115
  Serious: Yes (Hospitalization)
  Sender: FDA-Public Use
  Company Number: US-GILEAD-2007-0013214

PATIENT
  Sex: Female

DRUGS (2)
  1. LETAIRIS [Suspect]
  2. ISONIAZID [Concomitant]
     Indication: TUBERCULOSIS SKIN TEST POSITIVE
     Dates: start: 20070401, end: 20070801

REACTIONS (3)
  - ABDOMINAL PAIN [None]
  - NAUSEA [None]
  - VOMITING [None]
